FAERS Safety Report 5849292-2 (Version None)
Quarter: 2008Q3

REPORT INFORMATION
  Report Type: 
  Country: None (occurrence: None)
  Receive Date: 20080815
  Receipt Date: 20080811
  Transmission Date: 20090109
  Serious: Yes (Other)
  Sender: FDA-Public Use
  Company Number: US024206

PATIENT
  Age: 67 Year
  Sex: Female
  Weight: 73.9363 kg

DRUGS (1)
  1. TREANDA [Suspect]
     Dosage: UNK INTRAVENOUS
     Route: 042

REACTIONS (2)
  - CYTOMEGALOVIRUS TEST [None]
  - DISEASE RECURRENCE [None]
